FAERS Safety Report 4446856-8 (Version None)
Quarter: 2004Q3

REPORT INFORMATION
  Report Type: 
  Country: None (occurrence: None)
  Receive Date: 20040902
  Receipt Date: 20040827
  Transmission Date: 20050211
  Serious: Yes (Hospitalization)
  Sender: FDA-Public Use
  Company Number: RENA-11089

PATIENT
  Age: 45 Year
  Sex: Male
  Weight: 63.5 kg

DRUGS (5)
  1. RENAGEL [Suspect]
     Indication: HYPERPHOSPHATAEMIA
     Dosage: 1 G TID PO
     Route: 048
     Dates: start: 20031006
  2. ZOPICLONE [Concomitant]
  3. NICERITROL [Concomitant]
  4. AMLODIPINE BESYLATE [Concomitant]
  5. TELMISARTAN [Concomitant]

REACTIONS (2)
  - ANAEMIA [None]
  - GASTRIC ULCER HAEMORRHAGE [None]
